FAERS Safety Report 18381045 (Version 1)
Quarter: 2020Q4

REPORT INFORMATION
  Report Type: Spontaneous
  Country: US (occurrence: US)
  Receive Date: 20201013
  Receipt Date: 20201013
  Transmission Date: 20210114
  Serious: No
  Sender: FDA-Public Use
  Company Number: None

PATIENT
  Age: 84 Year
  Sex: Female
  Weight: 54.45 kg

DRUGS (14)
  1. TYLENOL [Concomitant]
     Active Substance: ACETAMINOPHEN
  2. AMOXICILLIN. [Concomitant]
     Active Substance: AMOXICILLIN
  3. ELIQUIS [Concomitant]
     Active Substance: APIXABAN
  4. METOPROLOL. [Concomitant]
     Active Substance: METOPROLOL
  5. VIT D [Concomitant]
     Active Substance: VITAMIN D NOS
  6. LORATADINE. [Concomitant]
     Active Substance: LORATADINE
  7. MULTAQ [Concomitant]
     Active Substance: DRONEDARONE
  8. FERROUS SULFATE. [Concomitant]
     Active Substance: FERROUS SULFATE
  9. LASIX [Concomitant]
     Active Substance: FUROSEMIDE
  10. ALBUTEROL. [Concomitant]
     Active Substance: ALBUTEROL
  11. VERAPAMIL [Concomitant]
     Active Substance: VERAPAMIL HYDROCHLORIDE
  12. VITAMIN B12 [Concomitant]
     Active Substance: CYANOCOBALAMIN
  13. NINLARO [Suspect]
     Active Substance: IXAZOMIB CITRATE
     Indication: WALDENSTROM^S MACROGLOBULINAEMIA
     Dosage: ?          OTHER FREQUENCY:3 TIMES A WEEK;?
     Route: 048
     Dates: start: 20200527, end: 20201013
  14. VERAMYST [Concomitant]
     Active Substance: FLUTICASONE FUROATE

REACTIONS (1)
  - Disease progression [None]

NARRATIVE: CASE EVENT DATE: 20201013
